FAERS Safety Report 6096271-9 (Version None)
Quarter: 2009Q1

REPORT INFORMATION
  Report Type: 
  Country: None (occurrence: None)
  Receive Date: 20090227
  Receipt Date: 20081028
  Transmission Date: 20090719
  Serious: No
  Sender: FDA-Public Use
  Company Number: A0753882A

PATIENT
  Age: 46 Year
  Sex: Male

DRUGS (8)
  1. LAMICTAL [Suspect]
     Indication: BIPOLAR DISORDER
     Dosage: 200MG PER DAY
     Route: 048
     Dates: start: 20080703
  2. METHADONE HCL [Concomitant]
  3. PROVIGIL [Concomitant]
  4. ABILIFY [Concomitant]
  5. PROVENTIL [Concomitant]
  6. PREDNISONE [Concomitant]
  7. HYDROCORTISONE TAB [Concomitant]
  8. LEVOTHYROXINE SODIUM [Concomitant]

REACTIONS (7)
  - APHTHOUS STOMATITIS [None]
  - BACK PAIN [None]
  - CHEST PAIN [None]
  - HEART RATE IRREGULAR [None]
  - HYPOAESTHESIA [None]
  - ILL-DEFINED DISORDER [None]
  - INFLAMMATION [None]
